FAERS Safety Report 7535210-8 (Version None)
Quarter: 2011Q2

REPORT INFORMATION
  Report Type: 
  Country: None (occurrence: None)
  Receive Date: 20110609
  Receipt Date: 20071127
  Transmission Date: 20111010
  Serious: Yes (Death)
  Sender: FDA-Public Use
  Company Number: PHHY2007NZ00639

PATIENT
  Sex: Male

DRUGS (3)
  1. PAROXETINE HCL [Concomitant]
     Dosage: 40 MG, DAILY
  2. VALPROATE SODIUM [Concomitant]
     Dosage: 1000 MG, QHS
  3. CLOZAPINE [Suspect]
     Indication: SCHIZOPHRENIA
     Dosage: 650 MG, QHS
     Route: 048
     Dates: start: 20050509

REACTIONS (1)
  - DEATH [None]
